FAERS Safety Report 13858058 (Version 1)
Quarter: 2017Q3

REPORT INFORMATION
  Report Type: Spontaneous
  Country: IT (occurrence: IT)
  Receive Date: 20170811
  Receipt Date: 20170811
  Transmission Date: 20171127
  Serious: Yes (Other)
  Sender: FDA-Public Use
  Company Number: IT-009507513-0403USA02562

PATIENT
  Age: 46 Year
  Sex: Male

DRUGS (4)
  1. DECADRON [Suspect]
     Active Substance: DEXAMETHASONE
     Indication: SURGERY
     Dosage: 8 MG, UNK
     Route: 030
     Dates: start: 200009
  2. CYCLOPHOSPHAMIDE. [Concomitant]
     Active Substance: CYCLOPHOSPHAMIDE
     Indication: NON-HODGKIN^S LYMPHOMA
     Dosage: 1.3 MG, UNK
     Route: 042
  3. PREDNISONE. [Suspect]
     Active Substance: PREDNISONE
     Indication: SURGERY
     Dosage: 75 MG, QD
     Route: 048
     Dates: start: 200009
  4. VINCRISTINE SULFATE. [Concomitant]
     Active Substance: VINCRISTINE SULFATE
     Indication: NON-HODGKIN^S LYMPHOMA
     Dosage: 1.5 MG, UNK
     Route: 042

REACTIONS (4)
  - Chorioretinopathy [Recovering/Resolving]
  - Retinal detachment [Recovering/Resolving]
  - Vision blurred [Unknown]
  - Visual field defect [Recovering/Resolving]

NARRATIVE: CASE EVENT DATE: 200009
